FAERS Safety Report 6501985-X (Version None)
Quarter: 2009Q4

REPORT INFORMATION
  Report Type: 
  Country: None (occurrence: None)
  Receive Date: 20091216
  Receipt Date: 20091208
  Transmission Date: 20100525
  Serious: Yes (Hospitalization, Other)
  Sender: FDA-Public Use
  Company Number: US-ABBOTT-09P-163-0613799-00

PATIENT
  Sex: Female
  Weight: 64.922 kg

DRUGS (6)
  1. SIMCOR [Suspect]
     Indication: BLOOD TRIGLYCERIDES INCREASED
     Dosage: 500/20
     Dates: start: 20090501, end: 20090801
  2. SIMCOR [Suspect]
     Dosage: 1000/20
     Dates: start: 20090801
  3. MULTIPLE VITAMINS [Concomitant]
     Indication: VITAMIN SUPPLEMENTATION
  4. FISH OIL [Concomitant]
     Indication: MEDICAL DIET
  5. GLUCOSAMINE + CHONDROITIN [Concomitant]
     Indication: ROUTINE HEALTH MAINTENANCE
  6. COQ10 [Concomitant]
     Indication: ROUTINE HEALTH MAINTENANCE

REACTIONS (3)
  - DIARRHOEA [None]
  - FLUSHING [None]
  - HEART RATE INCREASED [None]
